FAERS Safety Report 4528585-5 (Version None)
Quarter: 2004Q4

REPORT INFORMATION
  Report Type: 
  Country: None (occurrence: None)
  Receive Date: 20041216
  Receipt Date: 20041108
  Transmission Date: 20050328
  Serious: Yes (Hospitalization)
  Sender: FDA-Public Use
  Company Number: PHFR2004GB04522

PATIENT
  Sex: Male

DRUGS (5)
  1. LISINOPRIL [Concomitant]
     Route: 048
  2. ASPIRIN [Suspect]
     Route: 048
  3. METOPROLOL [Suspect]
     Route: 048
  4. NAPROXEN [Suspect]
     Route: 048
  5. CHLORTHALIDONE [Suspect]
     Route: 048
     Dates: end: 20041027

REACTIONS (2)
  - BLOOD SODIUM DECREASED [None]
  - RENAL FAILURE ACUTE [None]
